FAERS Safety Report 6407919-0 (Version None)
Quarter: 2009Q4

REPORT INFORMATION
  Report Type: 
  Country: None (occurrence: None)
  Receive Date: 20091016
  Receipt Date: 20091012
  Transmission Date: 20100525
  Serious: Yes (Death, Hospitalization)
  Sender: FDA-Public Use
  Company Number: 8020244

PATIENT
  Age: 51 Year
  Sex: Female
  Weight: 69.3 kg

DRUGS (9)
  1. CDP870 [Suspect]
     Indication: CROHN'S DISEASE
     Dosage: 400 MG 1/2W SC
     Route: 058
     Dates: start: 20040604, end: 20040702
  2. CDP870 [Suspect]
     Indication: CROHN'S DISEASE
     Dosage: 400 MG /M SC
     Route: 058
     Dates: start: 20040730, end: 20040827
  3. CDP870 [Suspect]
     Indication: CROHN'S DISEASE
     Dosage: 400 MG 1/2W SC
     Route: 058
     Dates: start: 20040924, end: 20041022
  4. CDP870 [Suspect]
     Indication: CROHN'S DISEASE
     Dosage: 400 MG /M SC
     Route: 058
     Dates: start: 20041119, end: 20061120
  5. ASACOL [Concomitant]
  6. ACETAMINOPHEN [Concomitant]
  7. AROPAX [Concomitant]
  8. NEO-CYTAMEN [Concomitant]
  9. LEMNIS HC [Concomitant]

REACTIONS (31)
  - BLOOD FOLLICLE STIMULATING HORMONE INCREASED [None]
  - BLOOD POTASSIUM DECREASED [None]
  - BREAST ABSCESS [None]
  - BREAST CANCER [None]
  - COLITIS [None]
  - DELIRIUM [None]
  - DENTAL CARIES [None]
  - ECZEMA [None]
  - GASTROINTESTINAL DISORDER [None]
  - GENERAL PHYSICAL HEALTH DETERIORATION [None]
  - HEADACHE [None]
  - HYDRONEPHROSIS [None]
  - ILEUS [None]
  - IMPAIRED HEALING [None]
  - INFECTION [None]
  - LUNG DISORDER [None]
  - MALIGNANT PLEURAL EFFUSION [None]
  - MASTITIS [None]
  - METASTASES TO BONE [None]
  - METASTASES TO LYMPH NODES [None]
  - METASTASES TO PERITONEUM [None]
  - METASTASES TO SPINE [None]
  - OESTROGEN RECEPTOR ASSAY POSITIVE [None]
  - POST PROCEDURAL COMPLICATION [None]
  - PROGESTERONE RECEPTOR ASSAY POSITIVE [None]
  - RENAL FAILURE ACUTE [None]
  - SEROMA [None]
  - SPLENIC LESION [None]
  - TUMOUR INVASION [None]
  - URINARY TRACT INFECTION STAPHYLOCOCCAL [None]
  - WOUND ABSCESS [None]
